FAERS Safety Report 4506067-4 (Version None)
Quarter: 2004Q4

REPORT INFORMATION
  Report Type: 
  Country: None (occurrence: None)
  Receive Date: 20041025
  Receipt Date: 20040507
  Transmission Date: 20050328
  Serious: Yes (Hospitalization)
  Sender: FDA-Public Use
  Company Number: US-JNJFOC-20040501860

PATIENT
  Age: 52 Year
  Sex: Female

DRUGS (10)
  1. INFLIXIMAB (INFLIXIMAB, RECOMBINANT) LYOPHILIZED POWDER [Suspect]
     Indication: RHEUMATOID ARTHRITIS
     Dosage: INTRAVENOUS
     Route: 042
     Dates: start: 20020405
  2. FOSAMAX [Concomitant]
  3. FOLIC ACID [Concomitant]
  4. PLAQUENIL [Concomitant]
  5. PREDNISONE [Concomitant]
  6. METHOTREXATE [Concomitant]
  7. OSCAL (CALCIUM CARBONATE) [Concomitant]
  8. CENTRUM (CENTRUM) [Concomitant]
  9. NAPROXEN (NAPROXEN) TABLETS [Concomitant]
  10. APAP (PARACETAMOL) TABLETS [Concomitant]

REACTIONS (1)
  - KIDNEY INFECTION [None]
